FAERS Safety Report 9505922 (Version 1)
Quarter: 2013Q1

REPORT INFORMATION
  Report Type: Spontaneous
  Country: US (occurrence: None)
  Receive Date: 20130212
  Receipt Date: 20130212
  Transmission Date: 20140127
  Serious: Yes (Other)
  Sender: FDA-Public Use
  Company Number: 2012SCPR003988

PATIENT
  Sex: Female

DRUGS (1)
  1. BUPROPION [Suspect]

REACTIONS (1)
  - Maternal exposure during pregnancy [None]
